FAERS Safety Report 6600185-2 (Version None)
Quarter: 2010Q1

REPORT INFORMATION
  Report Type: 
  Country: None (occurrence: None)
  Receive Date: 20100224
  Receipt Date: 20100216
  Transmission Date: 20100710
  Serious: Yes (Hospitalization)
  Sender: FDA-Public Use
  Company Number: B0611435A

PATIENT
  Age: 73 Year
  Sex: Female

DRUGS (7)
  1. AUGMENTIN [Suspect]
     Indication: PAROTITIS
     Route: 065
  2. INFLUENZA VACCINE (SPLIT VIRION, INACTIVATED) [Suspect]
     Indication: PROPHYLAXIS
     Route: 030
     Dates: start: 20081018, end: 20081018
  3. AMLODIPINE [Concomitant]
     Indication: HYPERTENSION
     Route: 048
     Dates: start: 20040127
  4. LACTULOSE [Concomitant]
     Indication: CONSTIPATION
     Route: 048
     Dates: start: 20060726
  5. PSYLLIUM [Concomitant]
     Indication: CONSTIPATION
     Route: 048
     Dates: start: 20041115
  6. ASPIRIN [Concomitant]
     Indication: HYPERTENSION
     Route: 048
     Dates: start: 20040113
  7. BENDROFLUMETHIAZIDE [Concomitant]
     Indication: HYPERTENSION
     Route: 048
     Dates: start: 20051207

REACTIONS (2)
  - ERYTHEMA MULTIFORME [None]
  - PAROTITIS [None]
